FAERS Safety Report 9163818 (Version 1)
Quarter: 2013Q1

REPORT INFORMATION
  Report Type: Spontaneous
  Country: US (occurrence: US)
  Receive Date: 20130314
  Receipt Date: 20130314
  Transmission Date: 20140127
  Serious: No
  Sender: FDA-Public Use
  Company Number: US-ASTRAZENECA-2013SE08461

PATIENT
  Age: 71 Year
  Sex: Male

DRUGS (2)
  1. SYMBICORT [Suspect]
     Indication: ASTHMA
     Dosage: FREQUENCY IS TWO TIMES A DAY
     Route: 055
     Dates: start: 201206
  2. PROVENTIL [Concomitant]
     Indication: ASTHMA

REACTIONS (2)
  - Dyspepsia [Unknown]
  - Abdominal discomfort [Unknown]
